FAERS Safety Report 9862450 (Version 1)
Quarter: 2014Q1

REPORT INFORMATION
  Report Type: Report from Study
  Country: US (occurrence: US)
  Receive Date: 20140203
  Receipt Date: 20140203
  Transmission Date: 20141002
  Serious: Yes (Other)
  Sender: FDA-Public Use
  Company Number: US-ASTELLAS-2014US001054

PATIENT
  Age: 69 Year
  Sex: Female

DRUGS (3)
  1. ERLOTINIB TABLET [Suspect]
     Indication: VULVAL CANCER
     Dosage: 150 MG, UID/QD
     Route: 048
     Dates: start: 20130621, end: 20130802
  2. ERLOTINIB TABLET [Suspect]
     Dosage: 150 MG, QOD
     Route: 048
     Dates: start: 201311, end: 20140116
  3. ERLOTINIB TABLET [Suspect]
     Dosage: 150 MG, UID/QD
     Route: 048
     Dates: start: 20140117

REACTIONS (7)
  - Off label use [Unknown]
  - Intracardiac thrombus [Recovered/Resolved]
  - Diarrhoea [Recovered/Resolved]
  - Stomatitis [Recovered/Resolved]
  - Decreased appetite [Recovered/Resolved]
  - Fatigue [Not Recovered/Not Resolved]
  - Malignant neoplasm progression [Not Recovered/Not Resolved]
